FAERS Safety Report 19530673 (Version 1)
Quarter: 2021Q3

REPORT INFORMATION
  Report Type: Spontaneous
  Country: US (occurrence: US)
  Receive Date: 20210713
  Receipt Date: 20210713
  Transmission Date: 20211014
  Serious: No
  Sender: FDA-Public Use
  Company Number: US-MYLANLABS-2021M1039313

PATIENT
  Sex: Female

DRUGS (7)
  1. MONTELUKAST [Concomitant]
     Active Substance: MONTELUKAST SODIUM
     Dosage: UNK
  2. OMEPRAZOLE. [Concomitant]
     Active Substance: OMEPRAZOLE
     Dosage: UNK
  3. METOPROLOL. [Concomitant]
     Active Substance: METOPROLOL
     Dosage: UNK
  4. NAPROXEN. [Concomitant]
     Active Substance: NAPROXEN
     Dosage: UNK
  5. METFORMIN [Concomitant]
     Active Substance: METFORMIN HYDROCHLORIDE
     Dosage: UNK
  6. LIDOCAINE PATCH [Suspect]
     Active Substance: LIDOCAINE
     Indication: NEURALGIA
     Dosage: 1 PATCH A DAY FOR 12 HOURS
     Route: 003
     Dates: start: 20210628
  7. VALSARTAN. [Concomitant]
     Active Substance: VALSARTAN
     Dosage: UNK

REACTIONS (4)
  - Off label use [Not Recovered/Not Resolved]
  - Product quality issue [Unknown]
  - Wrong technique in product usage process [Unknown]
  - Product adhesion issue [Not Recovered/Not Resolved]
